FAERS Safety Report 19274823 (Version 1)
Quarter: 2021Q2

REPORT INFORMATION
  Report Type: Spontaneous
  Country: US (occurrence: US)
  Receive Date: 20210519
  Receipt Date: 20210519
  Transmission Date: 20210717
  Serious: Yes (Other)
  Sender: FDA-Public Use
  Company Number: US-PFIZER INC-2021510613

PATIENT
  Age: 48 Year
  Sex: Female
  Weight: 61.23 kg

DRUGS (6)
  1. LOPERAMIDE HCL [Suspect]
     Active Substance: LOPERAMIDE HYDROCHLORIDE
     Indication: DIARRHOEA
     Dosage: 2 MG, 2X/DAY
     Dates: start: 20210423
  2. ATROPINE SULFATE. [Suspect]
     Active Substance: ATROPINE SULFATE
     Dosage: UNK
  3. DICYCLOMINE [Suspect]
     Active Substance: DICYCLOMINE HYDROCHLORIDE
     Dosage: 20 MG, 4X/DAY
     Dates: start: 20210503
  4. ACYCLOVIR [ACICLOVIR] [Concomitant]
     Active Substance: ACYCLOVIR
     Dosage: UNK
     Dates: start: 2019
  5. VANCOMYCIN HCL [Suspect]
     Active Substance: VANCOMYCIN HYDROCHLORIDE
     Indication: DIARRHOEA
     Dosage: 250 MG, 3X/DAY
     Dates: start: 20210429
  6. BENADRYL [Suspect]
     Active Substance: DIPHENHYDRAMINE HYDROCHLORIDE
     Dosage: UNK
     Route: 042

REACTIONS (2)
  - Drug ineffective for unapproved indication [Unknown]
  - Off label use [Unknown]

NARRATIVE: CASE EVENT DATE: 2021
